FAERS Safety Report 21650274 (Version 2)
Quarter: 2022Q4

REPORT INFORMATION
  Report Type: Spontaneous
  Country: JP (occurrence: JP)
  Receive Date: 20221128
  Receipt Date: 20221129
  Transmission Date: 20230113
  Serious: Yes (Death, Hospitalization, Other)
  Sender: FDA-Public Use
  Company Number: JP-BRISTOL-MYERS SQUIBB COMPANY-BMS-2021-135464

PATIENT
  Age: 78 Year
  Sex: Male
  Weight: 64.4 kg

DRUGS (14)
  1. YERVOY [Suspect]
     Active Substance: IPILIMUMAB
     Indication: Pleural mesothelioma malignant
     Route: 041
  2. YERVOY [Suspect]
     Active Substance: IPILIMUMAB
     Route: 041
     Dates: start: 20210728, end: 20210728
  3. OPDIVO [Suspect]
     Active Substance: NIVOLUMAB
     Indication: Pleural mesothelioma malignant
     Dosage: UNK
     Route: 041
  4. OPDIVO [Suspect]
     Active Substance: NIVOLUMAB
     Dosage: 360 MG
     Route: 041
     Dates: start: 20210728, end: 20210728
  5. CODEINE PHOSPHATE [Concomitant]
     Active Substance: CODEINE PHOSPHATE
     Indication: Pleural mesothelioma malignant
     Dosage: 20 MG, Q6H
     Route: 048
     Dates: start: 20210721
  6. ICOSAPENT [Concomitant]
     Active Substance: ICOSAPENT
     Indication: Hyperlipidaemia
     Dosage: 1 DF, Q8H
     Route: 048
  7. CILOSTAZOL [Concomitant]
     Active Substance: CILOSTAZOL
     Indication: Product used for unknown indication
     Dosage: 100 MG, Q12H
     Route: 048
  8. ROSUVASTATIN CALCIUM [Concomitant]
     Active Substance: ROSUVASTATIN CALCIUM
     Indication: Hyperlipidaemia
     Dosage: 2.5 MG, EVERYDAY
     Route: 048
  9. ALLOPURINOL [Concomitant]
     Active Substance: ALLOPURINOL
     Indication: Hyperuricaemia
     Dosage: 100 MG, EVERYDAY
     Route: 048
  10. NEXIUM [Concomitant]
     Active Substance: ESOMEPRAZOLE MAGNESIUM
     Indication: Product used for unknown indication
     Route: 048
  11. URSO [Concomitant]
     Active Substance: URSODIOL
     Indication: Product used for unknown indication
     Dosage: 200 MG, Q8H
     Route: 048
  12. METOCLOPRAMIDE [Concomitant]
     Active Substance: METOCLOPRAMIDE
     Indication: Prophylaxis
     Dosage: 5 MG, Q8H
     Route: 048
     Dates: start: 20210728
  13. LOXOPROFEN [Concomitant]
     Active Substance: LOXOPROFEN
     Indication: Pleural mesothelioma malignant
     Dosage: 60 MG, Q8H
     Route: 048
     Dates: start: 20210728
  14. PROCHLORPERAZINE [Concomitant]
     Active Substance: PROCHLORPERAZINE
     Indication: Prophylaxis
     Dosage: 5 MG, Q8H
     Route: 048
     Dates: start: 20210728

REACTIONS (7)
  - Interstitial lung disease [Fatal]
  - Malignant neoplasm progression [Fatal]
  - Oedema peripheral [Unknown]
  - Hypoxia [Unknown]
  - Cardiac failure congestive [Unknown]
  - Painful respiration [Unknown]
  - Oxygen saturation decreased [Unknown]

NARRATIVE: CASE EVENT DATE: 20210817
